FAERS Safety Report 10502958 (Version 2)
Quarter: 2014Q4

REPORT INFORMATION
  Report Type: Spontaneous
  Country: US (occurrence: US)
  Receive Date: 20141007
  Receipt Date: 20141007
  Transmission Date: 20150528
  Serious: Yes (Death)
  Sender: FDA-Public Use
  Company Number: US-ELI_LILLY_AND_COMPANY-US200601005526

PATIENT
  Age: 40 Year
  Sex: Male

DRUGS (4)
  1. ZYPREXA [Suspect]
     Active Substance: OLANZAPINE
     Indication: MANIA
     Dosage: UNK UNK, EACH MORNING
     Route: 048
     Dates: start: 200305, end: 200307
  2. ZYPREXA [Suspect]
     Active Substance: OLANZAPINE
     Indication: BIPOLAR DISORDER
     Dosage: 15 MG, EACH EVENING
     Route: 048
     Dates: start: 200312
  3. FLUOXETINE [Suspect]
     Active Substance: FLUOXETINE\FLUOXETINE HYDROCHLORIDE
     Indication: BIPOLAR DISORDER
     Dosage: UNK, UNKNOWN
     Route: 048
  4. WELLBUTRIN SR [Concomitant]
     Active Substance: BUPROPION HYDROCHLORIDE
     Dosage: 150 MG, EACH MORNING
     Route: 048
     Dates: start: 20040122

REACTIONS (9)
  - Gun shot wound [Fatal]
  - Somnolence [Unknown]
  - Social avoidant behaviour [Unknown]
  - Flat affect [Unknown]
  - Depression [Unknown]
  - Somnolence [None]
  - Emotional poverty [Unknown]
  - Completed suicide [Fatal]
  - Mental impairment [Unknown]

NARRATIVE: CASE EVENT DATE: 20040126
